FAERS Safety Report 11731070 (Version 1)
Quarter: 2015Q4

REPORT INFORMATION
  Report Type: Spontaneous
  Country: US (occurrence: US)
  Receive Date: 20151110
  Receipt Date: 20151110
  Transmission Date: 20160304
  Serious: No
  Sender: FDA-Public Use
  Company Number: US-ELI_LILLY_AND_COMPANY-US201202004529

PATIENT
  Sex: Female

DRUGS (1)
  1. FORTEO [Suspect]
     Active Substance: TERIPARATIDE
     Indication: OSTEOPOROSIS
     Dosage: 20 UG, QD
     Dates: start: 20120125

REACTIONS (10)
  - Hypotension [Not Recovered/Not Resolved]
  - Feeling abnormal [Unknown]
  - Medical device complication [Unknown]
  - Chills [Unknown]
  - Pain [Recovering/Resolving]
  - Urinary tract infection [Recovered/Resolved]
  - Mobility decreased [Not Recovered/Not Resolved]
  - Decreased activity [Recovering/Resolving]
  - Influenza like illness [Unknown]
  - Asthenia [Not Recovered/Not Resolved]
